FAERS Safety Report 6645852-X (Version None)
Quarter: 2010Q1

REPORT INFORMATION
  Report Type: 
  Country: None (occurrence: None)
  Receive Date: 20100318
  Receipt Date: 20100318
  Transmission Date: 20100710
  Serious: Yes (Other)
  Sender: FDA-Public Use
  Company Number: None

PATIENT
  Age: 94 Year
  Sex: Male
  Weight: 61.2 kg

DRUGS (8)
  1. LOVENOX [Suspect]
     Indication: DEEP VEIN THROMBOSIS
     Dosage: 60 MG DAILY SQ
     Route: 058
     Dates: start: 20100228, end: 20100306
  2. UNASYN [Concomitant]
  3. METOPROLOL TARTRATE [Concomitant]
  4. POTASSIUM CHLORIDE [Concomitant]
  5. PLAVIX [Concomitant]
  6. NIFEDIPINE [Concomitant]
  7. CARBIDOPA-LEVODOPA [Concomitant]
  8. VITAMIN D [Concomitant]

REACTIONS (4)
  - ARTHRALGIA [None]
  - ERYTHEMA [None]
  - FEELING HOT [None]
  - JOINT SWELLING [None]
